FAERS Safety Report 7109114-9 (Version None)
Quarter: 2010Q4

REPORT INFORMATION
  Report Type: 
  Country: None (occurrence: None)
  Receive Date: 20101117
  Receipt Date: 20101110
  Transmission Date: 20110411
  Serious: Yes (Hospitalization)
  Sender: FDA-Public Use
  Company Number: US-US-EMD SERONO, INC.-7027143

PATIENT
  Sex: Male

DRUGS (1)
  1. SAIZEN [Suspect]

REACTIONS (1)
  - PSYCHIATRIC SYMPTOM [None]
